FAERS Safety Report 6773990-X (Version None)
Quarter: 2010Q2

REPORT INFORMATION
  Report Type: 
  Country: None (occurrence: None)
  Receive Date: 20100616
  Receipt Date: 20100616
  Transmission Date: 20101027
  Serious: Yes (Hospitalization)
  Sender: FDA-Public Use
  Company Number: None

PATIENT
  Age: 74 Year
  Sex: Male

DRUGS (1)
  1. SIMVASTATIN [Suspect]
     Dosage: EVERY DAY PO
     Route: 048
     Dates: start: 20100503, end: 20100609

REACTIONS (1)
  - ACUTE HEPATIC FAILURE [None]
